FAERS Safety Report 8374526 (Version 2)
Quarter: 2013Q2

REPORT INFORMATION
  Report Type: Spontaneous
  Country: US (occurrence: None)
  Receive Date: 20111221
  Receipt Date: 20121227
  Transmission Date: 20140414
  Serious: Yes (Other)
  Sender: FDA-Public Use
  Company Number: PHHY2011US01230

PATIENT
  Age: 5 Year
  Sex: Female
  Weight: 20.4 kg

DRUGS (5)
  1. EXJADE [Suspect]
     Indication: THALASSAEMIA BETA
     Dosage: 375 MG, QD, ORAL
     Route: 048
     Dates: start: 20101229
  2. KEPPRA [Concomitant]
  3. OMEPRAZOLE [Concomitant]
  4. MULTIVIT (VITAMINS NOS) [Concomitant]
  5. ALBUTEROL (SALBUTAMOL) [Concomitant]

REACTIONS (13)
  - HEPATITIS [None]
  - SERUM FERRITIN INCREASED [None]
  - FAECES DISCOLOURED [None]
  - ABNORMAL FAECES [None]
  - AMMONIA INCREASED [None]
  - LIVER DISORDER [None]
  - BLOOD BILIRUBIN INCREASED [None]
  - CONSTIPATION [None]
  - DIARRHOEA [None]
  - DRUG INEFFECTIVE [None]
  - SERUM FERRITIN DECREASED [None]
  - HEPATIC ENZYME INCREASED [None]
  - Drug-induced liver injury [None]
